FAERS Safety Report 16129347 (Version 1)
Quarter: 2019Q1

REPORT INFORMATION
  Report Type: Spontaneous
  Country: JP (occurrence: JP)
  Receive Date: 20190328
  Receipt Date: 20190328
  Transmission Date: 20190418
  Serious: Yes (Other)
  Sender: FDA-Public Use
  Company Number: JP-ASPEN-JPG2019JP002710

PATIENT

DRUGS (3)
  1. RITODRINE [Suspect]
     Active Substance: RITODRINE
     Indication: PREMATURE LABOUR
     Route: 065
  2. DEXAMETHASONE. [Suspect]
     Active Substance: DEXAMETHASONE
     Indication: ANTINUCLEAR ANTIBODY POSITIVE
     Dosage: UNK
     Route: 065
  3. BETAMETHASONE. [Suspect]
     Active Substance: BETAMETHASONE
     Indication: PREMATURE LABOUR
     Route: 065

REACTIONS (2)
  - Exposure during pregnancy [Unknown]
  - Low birth weight baby [Unknown]
